FAERS Safety Report 9631719 (Version 1)
Quarter: 2013Q4

REPORT INFORMATION
  Report Type: Spontaneous
  Country: JP (occurrence: None)
  Receive Date: 20131015
  Receipt Date: 20131015
  Transmission Date: 20140711
  Serious: Yes (Other)
  Sender: FDA-Public Use
  Company Number: CO-OR-JP-2013-137

PATIENT
  Age: 23 Year
  Sex: Female

DRUGS (2)
  1. PREDNISOLONE [Suspect]
     Indication: COLITIS ULCERATIVE
  2. CYCLOSPORINE [Suspect]
     Indication: COLITIS ULCERATIVE

REACTIONS (2)
  - Pouchitis [None]
  - Steroid withdrawal syndrome [None]
